FAERS Safety Report 23210750 (Version 2)
Quarter: 2023Q4

REPORT INFORMATION
  Report Type: Spontaneous
  Country: BR (occurrence: BR)
  Receive Date: 20231121
  Receipt Date: 20231201
  Transmission Date: 20240110
  Serious: Yes (Hospitalization)
  Sender: FDA-Public Use
  Company Number: BR-ELI_LILLY_AND_COMPANY-BR202311006646

PATIENT
  Sex: Male

DRUGS (3)
  1. BASAGLAR [Suspect]
     Active Substance: INSULIN GLARGINE
     Indication: Diabetes mellitus
     Dosage: 35 U, BID (35 IU ON AN EMPTY STOMACH IN THE MORNING AND 35 IU IN THE EVENING)
     Route: 065
     Dates: start: 2021
  2. BASAGLAR [Suspect]
     Active Substance: INSULIN GLARGINE
     Dosage: 35 U, OTHER (MORNING)
     Route: 065
  3. BASAGLAR [Suspect]
     Active Substance: INSULIN GLARGINE
     Dosage: 35 U, OTHER (EVENING)
     Route: 065

REACTIONS (11)
  - Increased insulin requirement [Unknown]
  - Gastroenteritis [Unknown]
  - Dehydration [Unknown]
  - Blood creatinine increased [Unknown]
  - Blood urea increased [Unknown]
  - Diabetic nephropathy [Unknown]
  - Polycythaemia vera [Unknown]
  - Inappropriate schedule of product administration [Unknown]
  - Accidental underdose [Unknown]
  - Hypertension [Unknown]
  - Drug ineffective [Unknown]
